FAERS Safety Report 7241204-2 (Version None)
Quarter: 2011Q1

REPORT INFORMATION
  Report Type: 
  Country: None (occurrence: None)
  Receive Date: 20110119
  Receipt Date: 20110119
  Transmission Date: 20110831
  Serious: Yes (Hospitalization)
  Sender: FDA-Public Use
  Company Number: None

PATIENT
  Sex: Male
  Weight: 77.7 kg

DRUGS (10)
  1. DILTIAZEM [Concomitant]
  2. FUROSEMIDE [Concomitant]
  3. ASPIRIN [Concomitant]
  4. LISINOPRIL [Concomitant]
  5. COLCHICINE [Concomitant]
  6. PLAQUENIL [Suspect]
     Indication: PERICARDITIS LUPUS
     Dosage: 400 MG -} 200 MG QD PO
     Route: 048
     Dates: start: 20100310, end: 20101121
  7. ROSUVASTATIN [Concomitant]
  8. OXAZEPAM [Concomitant]
  9. OMEPRAZOLE [Concomitant]
  10. PREDNISONE [Concomitant]

REACTIONS (10)
  - OEDEMA [None]
  - DIASTOLIC DYSFUNCTION [None]
  - DECREASED APPETITE [None]
  - LUPUS NEPHRITIS [None]
  - FATIGUE [None]
  - PULMONARY HYPERTENSION [None]
  - PLEURAL EFFUSION [None]
  - CARDIAC VALVE DISEASE [None]
  - CARDIAC FAILURE [None]
  - DYSPNOEA EXERTIONAL [None]
